FAERS Safety Report 15942511 (Version 4)
Quarter: 2019Q2

REPORT INFORMATION
  Report Type: Spontaneous
  Country: US (occurrence: US)
  Receive Date: 20190209
  Receipt Date: 20190410
  Transmission Date: 20190711
  Serious: Yes (Other)
  Sender: FDA-Public Use
  Company Number: US-ASTRAZENECA-2018SF26606

PATIENT
  Age: 80 Year
  Sex: Male
  Weight: 64.4 kg

DRUGS (21)
  1. PRILOSEC OTC [Suspect]
     Active Substance: OMEPRAZOLE MAGNESIUM
     Route: 048
     Dates: start: 2005, end: 2018
  2. ZOCOR [Concomitant]
     Active Substance: SIMVASTATIN
     Route: 048
     Dates: start: 20010530
  3. OFLOXACIN. [Concomitant]
     Active Substance: OFLOXACIN
  4. AMOXICILLIN. [Concomitant]
     Active Substance: AMOXICILLIN
  5. NIFEDICAL XL [Concomitant]
     Active Substance: NIFEDIPINE
  6. PRILOSEC [Suspect]
     Active Substance: OMEPRAZOLE MAGNESIUM
     Dosage: 20.0MG UNKNOWN
     Route: 048
     Dates: start: 1998, end: 2001
  7. TAMSULOSIN [Concomitant]
     Active Substance: TAMSULOSIN
  8. PRILOSEC [Suspect]
     Active Substance: OMEPRAZOLE MAGNESIUM
     Dosage: UNKNOWN
     Route: 048
     Dates: start: 19980130
  9. ACIPHEX [Suspect]
     Active Substance: RABEPRAZOLE SODIUM
     Dosage: 20.0MG UNKNOWN
     Route: 065
     Dates: start: 2001, end: 2018
  10. FINASTERIDE. [Concomitant]
     Active Substance: FINASTERIDE
  11. DONEPEZIL. [Concomitant]
     Active Substance: DONEPEZIL
  12. SIMVASTATIN. [Concomitant]
     Active Substance: SIMVASTATIN
  13. PRILOSEC OTC [Suspect]
     Active Substance: OMEPRAZOLE MAGNESIUM
     Route: 048
     Dates: start: 1986, end: 2014
  14. PANTOPRAZOLE [Suspect]
     Active Substance: PANTOPRAZOLE
     Dosage: 40.0MG UNKNOWN
     Route: 065
     Dates: start: 2015, end: 2018
  15. FLUARIX NOS [Concomitant]
     Active Substance: INFLUENZA VIRUS VACCINE
  16. PANTOPRAZOLE [Suspect]
     Active Substance: PANTOPRAZOLE
     Dosage: 40.0MG UNKNOWN
     Route: 065
     Dates: start: 1996
  17. METOPROLOL TARTRATE. [Concomitant]
     Active Substance: METOPROLOL TARTRATE
     Route: 048
     Dates: start: 20160721
  18. DONEPEZIL. [Concomitant]
     Active Substance: DONEPEZIL
     Route: 048
     Dates: start: 20161122
  19. ATENOLOL. [Concomitant]
     Active Substance: ATENOLOL
     Route: 048
     Dates: start: 20001012
  20. PLAVIX [Concomitant]
     Active Substance: CLOPIDOGREL BISULFATE
     Route: 048
     Dates: start: 20010530
  21. HYDRALAZINE [Concomitant]
     Active Substance: HYDRALAZINE HYDROCHLORIDE

REACTIONS (5)
  - Nephrogenic anaemia [Unknown]
  - Chronic kidney disease [Unknown]
  - Renal impairment [Unknown]
  - Renal failure [Not Recovered/Not Resolved]
  - Acute kidney injury [Unknown]

NARRATIVE: CASE EVENT DATE: 2015
